FAERS Safety Report 10745544 (Version 1)
Quarter: 2015Q1

REPORT INFORMATION
  Report Type: Spontaneous
  Country: US (occurrence: None)
  Receive Date: 20150127
  Receipt Date: 20150127
  Transmission Date: 20150721
  Serious: Yes (Hospitalization)
  Sender: FDA-Public Use
  Company Number: None

PATIENT
  Age: 63 Year
  Sex: Male
  Weight: 70.7 kg

DRUGS (1)
  1. HEPARIN [Suspect]
     Active Substance: HEPARIN SODIUM
     Indication: THROMBOSIS PROPHYLAXIS
     Route: 058
     Dates: start: 20141120, end: 20141122

REACTIONS (4)
  - Heparin-induced thrombocytopenia [None]
  - Anaemia [None]
  - Pancytopenia [None]
  - Skin ulcer [None]

NARRATIVE: CASE EVENT DATE: 20141121
